FAERS Safety Report 6491599-2 (Version None)
Quarter: 2009Q4

REPORT INFORMATION
  Report Type: 
  Country: None (occurrence: None)
  Receive Date: 20091208
  Receipt Date: 20091123
  Transmission Date: 20100525
  Serious: Yes (Other)
  Sender: FDA-Public Use
  Company Number: AUR-APL-2009-01429

PATIENT
  Age: 59 Year
  Sex: Female
  Weight: 63.5036 kg

DRUGS (8)
  1. METOPROLOL TARTRATE [Suspect]
     Dates: start: 20090101
  2. NITROGLYCERIN [Suspect]
     Dates: start: 20090101
  3. PREGABALIN (LYRICA) [Suspect]
     Indication: NEUROPATHY PERIPHERAL
  4. ANTIBIOTIC         (UNK) [Suspect]
  5. XANAX [Concomitant]
  6. NULEV (HYOSCAMINE) [Concomitant]
  7. TYLENOL W/ CODEINE NO. 3 [Concomitant]
  8. OXYCODONE [Concomitant]

REACTIONS (7)
  - BLOOD GLUCOSE INCREASED [None]
  - HUNGER [None]
  - INFLUENZA [None]
  - MYOCARDIAL INFARCTION [None]
  - VEIN DISORDER [None]
  - VISION BLURRED [None]
  - WEIGHT INCREASED [None]
